FAERS Safety Report 4932681-8 (Version None)
Quarter: 2006Q1

REPORT INFORMATION
  Report Type: 
  Country: None (occurrence: None)
  Receive Date: 20060301
  Receipt Date: 20060217
  Transmission Date: 20060701
  Serious: Yes (Hospitalization)
  Sender: FDA-Public Use
  Company Number: 200610176BFR

PATIENT
  Age: 70 Year
  Sex: Male
  Weight: 90 kg

DRUGS (12)
  1. SORAFENIB [Suspect]
     Indication: RENAL CELL CARCINOMA STAGE UNSPECIFIED
     Dosage: 400 MG BID ORAL; 200 MG BID ORAL, 200 MG QD ORAL
     Route: 048
     Dates: start: 20060109, end: 20060206
  2. SORAFENIB [Suspect]
     Indication: RENAL CELL CARCINOMA STAGE UNSPECIFIED
     Dosage: 400 MG BID ORAL; 200 MG BID ORAL, 200 MG QD ORAL
     Route: 048
     Dates: start: 20060211, end: 20060215
  3. NEURONTIN [Concomitant]
  4. KEPPRA [Concomitant]
  5. VASTEN [Concomitant]
  6. KARDEGIC [Concomitant]
  7. COVERSYL [Concomitant]
  8. PRIMPERAN TAB [Concomitant]
  9. CETIRIZINE HCL [Concomitant]
  10. IMODIUM [Concomitant]
  11. TIORFAN [Concomitant]
  12. SMECTA [Concomitant]

REACTIONS (5)
  - ATRIAL FLUTTER [None]
  - DEHYDRATION [None]
  - DIARRHOEA [None]
  - HEART RATE INCREASED [None]
  - RENAL FAILURE [None]
